FAERS Safety Report 11791054 (Version 2)
Quarter: 2016Q1

REPORT INFORMATION
  Report Type: Spontaneous
  Country: US (occurrence: US)
  Receive Date: 20151201
  Receipt Date: 20160111
  Transmission Date: 20160525
  Serious: No
  Sender: FDA-Public Use
  Company Number: US-PFIZER INC-2015396239

PATIENT
  Age: 61 Year
  Sex: Female
  Weight: 58.97 kg

DRUGS (4)
  1. LYRICA [Suspect]
     Active Substance: PREGABALIN
     Indication: FIBROMYALGIA
     Dosage: 60 MG, 2X/DAY
     Route: 048
     Dates: start: 20150922
  2. LACTOSE [Suspect]
     Active Substance: LACTOSE
     Dosage: UNK
     Dates: start: 20150922
  3. LYRICA [Suspect]
     Active Substance: PREGABALIN
     Dosage: 60 MG, 1X/DAY
     Route: 048
  4. MELOXICAM. [Concomitant]
     Active Substance: MELOXICAM
     Indication: ARTHRITIS
     Dosage: 7.5 MG, 1X/DAY

REACTIONS (8)
  - Reaction to drug excipients [Unknown]
  - Abdominal discomfort [Unknown]
  - Malaise [Recovered/Resolved]
  - Gastrointestinal sounds abnormal [Unknown]
  - Abdominal distension [Recovered/Resolved]
  - Diarrhoea [Recovered/Resolved]
  - Nausea [Unknown]
  - Hypoacusis [Unknown]

NARRATIVE: CASE EVENT DATE: 20150922
